FAERS Safety Report 4489307-X (Version None)
Quarter: 2004Q4

REPORT INFORMATION
  Report Type: 
  Country: None (occurrence: None)
  Receive Date: 20041026
  Receipt Date: 20041013
  Transmission Date: 20050328
  Serious: Yes (Other)
  Sender: FDA-Public Use
  Company Number: HQWYE559606OCT04

PATIENT
  Age: 46 Day
  Sex: Male

DRUGS (1)
  1. MINOCYCLINE HCL [Suspect]
     Indication: PLEURAL ADHESION
     Dosage: 18.75 MG INTRATHORACIC
     Route: 038

REACTIONS (2)
  - GASTRITIS HAEMORRHAGIC [None]
  - PAIN [None]
